FAERS Safety Report 14379198 (Version 1)
Quarter: 2018Q1

REPORT INFORMATION
  Report Type: Spontaneous
  Country: IN (occurrence: IN)
  Receive Date: 20180112
  Receipt Date: 20180112
  Transmission Date: 20180509
  Serious: Yes (Other)
  Sender: FDA-Public Use
  Company Number: IN-009507513-1708GBR004672

PATIENT
  Sex: Female

DRUGS (3)
  1. NOXAFIL [Suspect]
     Active Substance: POSACONAZOLE
     Indication: CANDIDA INFECTION
  2. PROGRAF [Concomitant]
     Active Substance: TACROLIMUS\TACROLIMUS ANHYDROUS
     Dosage: UNK UNK, BID
  3. NOXAFIL [Suspect]
     Active Substance: POSACONAZOLE
     Indication: ERYTHEMA NODOSUM
     Dosage: 5 ML, THREE TIMES DAILY
     Route: 048
     Dates: start: 20170807

REACTIONS (5)
  - Hyperchlorhydria [Unknown]
  - Product use in unapproved indication [Unknown]
  - Drug effective for unapproved indication [Unknown]
  - Abdominal distension [Unknown]
  - Candida infection [Unknown]

NARRATIVE: CASE EVENT DATE: 2017
